FAERS Safety Report 13351451 (Version 3)
Quarter: 2017Q2

REPORT INFORMATION
  Report Type: Report from Study
  Country: US (occurrence: US)
  Receive Date: 20170320
  Receipt Date: 20170621
  Transmission Date: 20170830
  Serious: Yes (Hospitalization, Other)
  Sender: FDA-Public Use
  Company Number: PHEH2017US007942

PATIENT
  Age: 65 Year
  Sex: Male
  Weight: 105 kg

DRUGS (2)
  1. VOTRIENT [Suspect]
     Active Substance: PAZOPANIB HYDROCHLORIDE
     Dosage: 800 MG, QD
     Route: 048
     Dates: start: 20150519, end: 201703
  2. VOTRIENT [Suspect]
     Active Substance: PAZOPANIB HYDROCHLORIDE
     Indication: RENAL CANCER
     Dosage: 200 MG, UNK
     Route: 048

REACTIONS (13)
  - Cardiac failure congestive [Recovering/Resolving]
  - Dyspnoea [Unknown]
  - Weight increased [Unknown]
  - Pulmonary oedema [Recovered/Resolved]
  - Malignant neoplasm progression [Unknown]
  - Chronic kidney disease [Not Recovered/Not Resolved]
  - Metastases to adrenals [Unknown]
  - Renal cancer [Unknown]
  - Metastases to skin [Unknown]
  - Hair colour changes [Unknown]
  - Metastases to lung [Unknown]
  - Metastases to bone [Unknown]
  - Weight decreased [Unknown]

NARRATIVE: CASE EVENT DATE: 20090101
